FAERS Safety Report 19883803 (Version 1)
Quarter: 2021Q3

REPORT INFORMATION
  Report Type: Spontaneous
  Country: US (occurrence: US)
  Receive Date: 20210927
  Receipt Date: 20210927
  Transmission Date: 20211014
  Serious: Yes (Other)
  Sender: FDA-Public Use
  Company Number: US-SUN PHARMACEUTICAL INDUSTRIES LTD-2021R1-312410

PATIENT
  Age: 13 Year
  Sex: Male

DRUGS (5)
  1. CISPLATIN. [Suspect]
     Active Substance: CISPLATIN
     Indication: CHEMOTHERAPY
     Dosage: 100 MILLIGRAM/SQ. METER/ IN 1 MG/ML D5 1/2 NS OVER 60 MINUTES
     Route: 013
  2. CISPLATIN. [Suspect]
     Active Substance: CISPLATIN
     Dosage: UNK/ 3 WEEK
     Route: 013
  3. DOXORUBICIN [Suspect]
     Active Substance: DOXORUBICIN
     Indication: CHEMOTHERAPY
     Dosage: 4.5 MILLIGRAM/SQ. METER/ IN 1 MG/ML D5 1/2 NS OVER 60 MINUTES
     Route: 013
  4. ETOPOSIDE. [Suspect]
     Active Substance: ETOPOSIDE
     Indication: CHEMOTHERAPY
     Dosage: UNK
     Route: 048
  5. DOXORUBICIN [Suspect]
     Active Substance: DOXORUBICIN
     Dosage: UNK/ 3 WEEK
     Route: 013

REACTIONS (3)
  - Tinnitus [Unknown]
  - Haematochezia [Unknown]
  - Tumour necrosis [Unknown]
